FAERS Safety Report 5574453-X (Version None)
Quarter: 2007Q4

REPORT INFORMATION
  Report Type: 
  Country: None (occurrence: None)
  Receive Date: 20071226
  Receipt Date: 20071226
  Transmission Date: 20080405
  Serious: Yes (Other)
  Sender: FDA-Public Use
  Company Number: None

PATIENT
  Age: 72 Year
  Sex: Male
  Weight: 93 kg

DRUGS (13)
  1. TAXOTERE [Suspect]
     Indication: PROSTATE CANCER
     Dosage: 166 MG (IV)
     Route: 042
     Dates: start: 20071129
  2. RAD001 2.5MG DAILY [Suspect]
     Indication: PROSTATE CANCER
     Dosage: 2.5 MG ORAL
     Route: 048
     Dates: start: 20071129
  3. BEVACIZUMAB 15MG/KG Q3WKS [Suspect]
     Dosage: 1395 MG (IV)
     Route: 042
     Dates: start: 20071129
  4. LESCOL [Concomitant]
  5. ROYAL JELLY [Concomitant]
  6. LEVOXYL [Concomitant]
  7. ALPHA LIPOIC ACID [Concomitant]
  8. TOPAMAX [Concomitant]
  9. OMEGA-3 [Concomitant]
  10. MAXALT [Concomitant]
  11. LUPRON [Concomitant]
  12. MAGNESIUM [Concomitant]
  13. ZOMETA [Concomitant]

REACTIONS (7)
  - ASTHENIA [None]
  - CHILLS [None]
  - FATIGUE [None]
  - FEBRILE NEUTROPENIA [None]
  - LYMPHADENOPATHY [None]
  - PLEURAL EFFUSION [None]
  - PNEUMONIA [None]
